FAERS Safety Report 9847197 (Version 3)
Quarter: 2014Q1

REPORT INFORMATION
  Report Type: Spontaneous
  Country: US (occurrence: US)
  Receive Date: 20140127
  Receipt Date: 20140213
  Transmission Date: 20141002
  Serious: Yes (Other)
  Sender: FDA-Public Use
  Company Number: US-PFIZER INC-2014025002

PATIENT
  Age: 57 Year
  Sex: Female
  Weight: 108 kg

DRUGS (5)
  1. LYRICA [Suspect]
     Indication: FIBROMYALGIA
     Dosage: 75 MG, 4X/DAY
  2. LYRICA [Suspect]
     Indication: NEUROPATHY PERIPHERAL
  3. LYRICA [Suspect]
     Indication: NERVE COMPRESSION
  4. LYRICA [Suspect]
     Indication: INTERVERTEBRAL DISC PROTRUSION
  5. LYRICA [Suspect]
     Indication: BACK PAIN

REACTIONS (4)
  - Head injury [Unknown]
  - Haemorrhage [Unknown]
  - Amnesia [Unknown]
  - Insomnia [Unknown]
